FAERS Safety Report 4516156-6 (Version None)
Quarter: 2004Q4

REPORT INFORMATION
  Report Type: 
  Country: None (occurrence: None)
  Receive Date: 20041201
  Receipt Date: 20041201
  Transmission Date: 20050328
  Serious: Yes (Life-Threatening)
  Sender: FDA-Public Use
  Company Number: None

PATIENT
  Age: 18 Year
  Sex: Female
  Weight: 54.4316 kg

DRUGS (2)
  1. TOPROL-XL [Suspect]
     Dosage: 50 MG TOPROL ONCE ORAL
     Route: 048
  2. TOPAMAX [Suspect]
     Dosage: 100 MG ONCE ORAL
     Route: 048

REACTIONS (3)
  - ASTHENIA [None]
  - DIZZINESS [None]
  - MEDICATION ERROR [None]
